FAERS Safety Report 13243467 (Version 1)
Quarter: 2017Q1

REPORT INFORMATION
  Report Type: Spontaneous
  Country: US (occurrence: US)
  Receive Date: 20170216
  Receipt Date: 20170216
  Transmission Date: 20170428
  Serious: No
  Sender: FDA-Public Use
  Company Number: US-ALLERGAN-1701613US

PATIENT
  Sex: Female

DRUGS (1)
  1. KYBELLA [Suspect]
     Active Substance: DEOXYCHOLIC ACID
     Indication: PRODUCT USED FOR UNKNOWN INDICATION
     Dosage: UNK, SINGLE
     Route: 058
     Dates: start: 20170111, end: 20170111

REACTIONS (3)
  - Rash erythematous [Not Recovered/Not Resolved]
  - Blister [Not Recovered/Not Resolved]
  - Skin ulcer [Not Recovered/Not Resolved]
